FAERS Safety Report 5378885-4 (Version None)
Quarter: 2007Q3

REPORT INFORMATION
  Report Type: 
  Country: None (occurrence: None)
  Receive Date: 20070705
  Receipt Date: 20070702
  Transmission Date: 20080115
  Serious: Yes (Life-Threatening, Hospitalization, Other)
  Sender: FDA-Public Use
  Company Number: PHHO2006GB17654

PATIENT
  Age: 41 Year
  Sex: Male

DRUGS (9)
  1. CERTICAN [Suspect]
     Indication: RENAL TRANSPLANT
     Dosage: 1 MG, BID
     Route: 048
     Dates: start: 20060928, end: 20061024
  2. PALLADONE [Suspect]
  3. OPIOIDS [Suspect]
  4. NEORAL [Suspect]
     Indication: RENAL TRANSPLANT
     Route: 048
     Dates: start: 20060928
  5. MIDAZOLAM HCL [Suspect]
     Dates: start: 20061027, end: 20061029
  6. HALOPERIDOL [Suspect]
     Dates: start: 20061026, end: 20061101
  7. LORAZEPAM [Suspect]
     Dates: start: 20061026, end: 20061027
  8. OLANZAPINE [Suspect]
     Dates: start: 20061026
  9. ARANESP [Concomitant]

REACTIONS (25)
  - AGITATION [None]
  - ANAEMIA [None]
  - BACK PAIN [None]
  - BLOOD CREATININE INCREASED [None]
  - CARDIAC ARREST [None]
  - CHILLS [None]
  - CONFUSIONAL STATE [None]
  - CULTURE URINE POSITIVE [None]
  - CYTOMEGALOVIRUS INFECTION [None]
  - HEADACHE [None]
  - HIATUS HERNIA [None]
  - INFLUENZA LIKE ILLNESS [None]
  - LYMPHADENOPATHY [None]
  - MUSCULOSKELETAL STIFFNESS [None]
  - OESOPHAGEAL ULCER [None]
  - PHARYNGITIS [None]
  - PHOTOPHOBIA [None]
  - PNEUMONIA [None]
  - PYREXIA [None]
  - RESPIRATORY ARREST [None]
  - SEPSIS [None]
  - STUPOR [None]
  - TINNITUS [None]
  - URINARY TRACT INFECTION [None]
  - VOMITING [None]
